FAERS Safety Report 7142694-6 (Version None)
Quarter: 2010Q4

REPORT INFORMATION
  Report Type: 
  Country: None (occurrence: None)
  Receive Date: 20101207
  Receipt Date: 20101201
  Transmission Date: 20110411
  Serious: Yes (Hospitalization, Other)
  Sender: FDA-Public Use
  Company Number: CA-ABBOTT-10P-028-0684734-00

PATIENT
  Sex: Female
  Weight: 46.308 kg

DRUGS (14)
  1. HUMIRA [Suspect]
     Indication: RHEUMATOID ARTHRITIS
     Route: 058
     Dates: start: 20100621, end: 20101027
  2. ATIVAN [Concomitant]
     Indication: INSOMNIA
     Route: 060
  3. OXYCET [Concomitant]
     Indication: BREAKTHROUGH PAIN
     Route: 048
  4. OXYCONTIN [Concomitant]
     Indication: PAIN
     Dosage: DAILY AS NEEDED
     Route: 048
  5. TEVA-HYDROXIDE [Concomitant]
     Indication: PRODUCT USED FOR UNKNOWN INDICATION
     Route: 048
  6. APO-SALVENT [Concomitant]
     Indication: DYSPNOEA
     Dosage: TWICE A DAY AS NEEDED
     Route: 055
  7. APO-LORAZEPAM [Concomitant]
     Indication: PRODUCT USED FOR UNKNOWN INDICATION
     Route: 048
  8. TEVA-TRAZODONE [Concomitant]
     Indication: ANXIOLYTIC THERAPY
     Dosage: AT BEDTIME
     Route: 048
  9. APO-PREDNISONE [Concomitant]
     Indication: PRODUCT USED FOR UNKNOWN INDICATION
     Route: 048
  10. APO-PREDNISONE [Concomitant]
     Route: 048
  11. MICOCIN [Concomitant]
     Indication: PRODUCT USED FOR UNKNOWN INDICATION
     Dosage: 1 SPRAY TWICE DAILY
     Route: 045
  12. FENTANYL [Concomitant]
     Indication: PRODUCT USED FOR UNKNOWN INDICATION
     Dosage: EVERY 72 HOURS AS NEEDED
     Route: 062
  13. FOLIC ACID [Concomitant]
     Indication: PRODUCT USED FOR UNKNOWN INDICATION
     Route: 048
  14. LITHANE [Concomitant]
     Indication: PRODUCT USED FOR UNKNOWN INDICATION
     Route: 048

REACTIONS (1)
  - CEREBROVASCULAR ACCIDENT [None]
